FAERS Safety Report 9857433 (Version 2)
Quarter: 2014Q1

REPORT INFORMATION
  Report Type: Spontaneous
  Country: CN (occurrence: CN)
  Receive Date: 20140131
  Receipt Date: 20140131
  Transmission Date: 20141002
  Serious: Yes (Hospitalization, Other)
  Sender: FDA-Public Use
  Company Number: CN-RANBAXY-2014RR-77169

PATIENT
  Age: 86 Year
  Sex: Female

DRUGS (5)
  1. METFORMIN [Suspect]
     Indication: TYPE 2 DIABETES MELLITUS
     Dosage: 1 G, TID
     Route: 065
  2. GLICLAZIDE [Concomitant]
     Indication: TYPE 2 DIABETES MELLITUS
     Dosage: 120 MG/DAY
     Route: 065
  3. CEFUROXIME [Concomitant]
     Indication: URINARY TRACT INFECTION BACTERIAL
     Route: 042
  4. METRONIDAZOLE [Concomitant]
     Indication: URINARY TRACT INFECTION BACTERIAL
     Route: 065
  5. POLYETHYLENE GLYCOL [Concomitant]
     Indication: BOWEL PREPARATION
     Route: 065

REACTIONS (2)
  - Lactic acidosis [Recovering/Resolving]
  - Renal failure acute [Recovering/Resolving]
